FAERS Safety Report 19685034 (Version 1)
Quarter: 2021Q3

REPORT INFORMATION
  Report Type: Spontaneous
  Country: US (occurrence: US)
  Receive Date: 20210811
  Receipt Date: 20210811
  Transmission Date: 20211014
  Serious: Yes (Other)
  Sender: FDA-Public Use
  Company Number: US-ASTELLAS-2021US030021

PATIENT
  Age: 57 Year
  Sex: Male

DRUGS (2)
  1. LUPRON [Concomitant]
     Active Substance: LEUPROLIDE ACETATE
     Indication: PROSTATE CANCER METASTATIC
     Dosage: UNK UNK, UNKNOWN FREQ.
     Route: 065
  2. XTANDI [Suspect]
     Active Substance: ENZALUTAMIDE
     Indication: PROSTATE CANCER METASTATIC
     Dosage: UNK UNK, UNKNOWN FREQ.
     Route: 065

REACTIONS (7)
  - Choking [Unknown]
  - Prostatic specific antigen increased [Recovered/Resolved]
  - Thyroiditis [Unknown]
  - Radiation salivary gland injury [Recovering/Resolving]
  - Spinal compression fracture [Unknown]
  - Malignant neoplasm progression [Recovered/Resolved]
  - Oesophagitis [Unknown]
